FAERS Safety Report 17756412 (Version 1)
Quarter: 2020Q2

REPORT INFORMATION
  Report Type: Spontaneous
  Country: FR (occurrence: FR)
  Receive Date: 20200507
  Receipt Date: 20200507
  Transmission Date: 20200714
  Serious: Yes (Hospitalization)
  Sender: FDA-Public Use
  Company Number: FR-CADILA HEALTHCARE LIMITED-FR-ZYDUS-023339

PATIENT

DRUGS (9)
  1. DICLOFENAC [Concomitant]
     Active Substance: DICLOFENAC
     Route: 061
  2. NEBIVOLOL. [Concomitant]
     Active Substance: NEBIVOLOL
  3. AMLODIPINE [Suspect]
     Active Substance: AMLODIPINE BESYLATE
     Indication: HYPERTENSION
     Dosage: 10 MILLIGRAM,(INTERVAL :1 DAYS)
     Route: 048
     Dates: end: 201802
  4. CORDARONE [Concomitant]
     Active Substance: AMIODARONE HYDROCHLORIDE
  5. BROMAZEPAM [Concomitant]
     Active Substance: BROMAZEPAM
  6. LANSOPRAZOLE. [Concomitant]
     Active Substance: LANSOPRAZOLE
  7. ARCOXIA [Concomitant]
     Active Substance: ETORICOXIB
  8. IRBESARTAN. [Concomitant]
     Active Substance: IRBESARTAN
  9. PREVISCAN [Concomitant]

REACTIONS (1)
  - Lymphoedema [Recovering/Resolving]

NARRATIVE: CASE EVENT DATE: 20180128
